FAERS Safety Report 17397444 (Version 2)
Quarter: 2020Q1

REPORT INFORMATION
  Report Type: Spontaneous
  Country: US (occurrence: US)
  Receive Date: 20200210
  Receipt Date: 20200303
  Transmission Date: 20200409
  Serious: No
  Sender: FDA-Public Use
  Company Number: US-ASTRAZENECA-2020SE12437

PATIENT
  Age: 68 Year
  Sex: Male
  Weight: 86.2 kg

DRUGS (2)
  1. PROBIOTICS [Concomitant]
     Active Substance: PROBIOTICS NOS
     Indication: DIARRHOEA
  2. BYDUREON [Suspect]
     Active Substance: EXENATIDE
     Indication: DIABETES MELLITUS
     Route: 058
     Dates: start: 201902

REACTIONS (5)
  - Drug dose omission by device [Unknown]
  - Injection site nodule [Recovering/Resolving]
  - Drug delivery system malfunction [Unknown]
  - Incorrect dose administered by device [Unknown]
  - Product preparation issue [Unknown]

NARRATIVE: CASE EVENT DATE: 2019
